FAERS Safety Report 5229133-7 (Version None)
Quarter: 2007Q1

REPORT INFORMATION
  Report Type: 
  Country: None (occurrence: None)
  Receive Date: 20061201
  Receipt Date: 20060908
  Transmission Date: 20070707
  Serious: No
  Sender: FDA-Public Use
  Company Number: US200609002912

PATIENT
  Age: 41 Year
  Sex: Female

DRUGS (2)
  1. CYMBALTA [Suspect]
     Dates: end: 20060808
  2. PROZAC [Suspect]
     Dates: start: 20060808

REACTIONS (2)
  - FACIAL PAIN [None]
  - HYPOAESTHESIA FACIAL [None]
